FAERS Safety Report 9823277 (Version 2)
Quarter: 2014Q1

REPORT INFORMATION
  Report Type: Spontaneous
  Country: US (occurrence: US)
  Receive Date: 20140116
  Receipt Date: 20140116
  Transmission Date: 20141002
  Serious: Yes (Hospitalization)
  Sender: FDA-Public Use
  Company Number: US-B.I. PHARMACEUTICALS,INC./RIDGEFIELD-2013-BI-22990BP

PATIENT
  Sex: Female
  Weight: 101.15 kg

DRUGS (10)
  1. PRADAXA [Suspect]
     Dates: start: 20120109, end: 20121231
  2. BENICAR [Concomitant]
  3. PRAVASTATIN [Concomitant]
  4. GABAPENTIN [Concomitant]
  5. GLIPIZIDE [Concomitant]
  6. TRAMADOL [Concomitant]
  7. CARB/LEVO [Concomitant]
  8. FOLBIC [Concomitant]
  9. HYDROCODO/ACETAMIN [Concomitant]
  10. MEDROXYPRE AC [Concomitant]

REACTIONS (4)
  - Vaginal haemorrhage [Unknown]
  - Anaemia [Unknown]
  - Renal failure acute [Unknown]
  - Renal tubular necrosis [Unknown]
